FAERS Safety Report 20826213 (Version 1)
Quarter: 2022Q2

REPORT INFORMATION
  Report Type: Spontaneous
  Country: US (occurrence: US)
  Receive Date: 20220513
  Receipt Date: 20220513
  Transmission Date: 20220720
  Serious: Yes (Hospitalization, Other)
  Sender: FDA-Public Use
  Company Number: US-ELI_LILLY_AND_COMPANY-US202205001321

PATIENT
  Sex: Female

DRUGS (1)
  1. VERZENIO [Suspect]
     Active Substance: ABEMACICLIB
     Indication: Tumour compression
     Dosage: 150 MG, BID
     Route: 065
     Dates: start: 20220415, end: 20220422

REACTIONS (2)
  - Abdominal pain [Recovering/Resolving]
  - Rash [Recovering/Resolving]
